FAERS Safety Report 7273227-1 (Version None)
Quarter: 2011Q1

REPORT INFORMATION
  Report Type: 
  Country: None (occurrence: None)
  Receive Date: 20110203
  Receipt Date: 20110125
  Transmission Date: 20110831
  Serious: Yes (Other)
  Sender: FDA-Public Use
  Company Number: US-ELI_LILLY_AND_COMPANY-US201011005999

PATIENT
  Age: 53 Year
  Sex: Female

DRUGS (5)
  1. CYMBALTA [Suspect]
     Dosage: 40 MG, DAILY (1/D)
     Route: 048
     Dates: start: 20060329, end: 20060412
  2. CYMBALTA [Suspect]
     Dosage: 60 MG, DAILY (1/D)
     Dates: start: 20060412, end: 20100317
  3. BENICAR [Concomitant]
     Indication: HYPERTENSION
  4. CYMBALTA [Suspect]
     Indication: DEPRESSION
     Dosage: 20 MG, DAILY (1/D)
     Route: 048
     Dates: start: 20060308, end: 20060329
  5. DIOVAN [Concomitant]
     Indication: HYPERTENSION
     Dates: start: 20090224

REACTIONS (2)
  - HEPATIC STEATOSIS [None]
  - HEPATITIS [None]
